FAERS Safety Report 12443213 (Version 6)
Quarter: 2018Q1

REPORT INFORMATION
  Report Type: Report from Study
  Country: US (occurrence: US)
  Receive Date: 20160607
  Receipt Date: 20180207
  Transmission Date: 20180508
  Serious: Yes (Other)
  Sender: FDA-Public Use
  Company Number: US-JNJFOC-20160305075

PATIENT
  Age: 64 Year
  Sex: Male

DRUGS (10)
  1. IMBRUVICA [Suspect]
     Active Substance: IBRUTINIB
     Indication: CHRONIC LYMPHOCYTIC LEUKAEMIA
     Route: 048
     Dates: start: 20151225
  2. IMBRUVICA [Suspect]
     Active Substance: IBRUTINIB
     Indication: CHRONIC LYMPHOCYTIC LEUKAEMIA
     Route: 048
     Dates: start: 20151224
  3. GAMUNEX [Concomitant]
     Active Substance: HUMAN IMMUNOGLOBULIN G
  4. TAMSULOSIN HYDROCHLORIDE. [Concomitant]
     Active Substance: TAMSULOSIN HYDROCHLORIDE
  5. SYNTHROID [Concomitant]
     Active Substance: LEVOTHYROXINE SODIUM
  6. MIRALAX [Concomitant]
     Active Substance: POLYETHYLENE GLYCOL 3350
  7. IMBRUVICA [Suspect]
     Active Substance: IBRUTINIB
     Indication: CHRONIC LYMPHOCYTIC LEUKAEMIA
     Route: 048
     Dates: start: 20151222
  8. MULTIVITAMINS [Concomitant]
     Active Substance: VITAMINS
  9. MAGNESIUM [Concomitant]
     Active Substance: MAGNESIUM
  10. METRONIDAZOL [Concomitant]
     Active Substance: METRONIDAZOLE

REACTIONS (21)
  - Hypoaesthesia [Unknown]
  - Off label use [Unknown]
  - Dry skin [Unknown]
  - Oral disorder [Unknown]
  - Increased viscosity of upper respiratory secretion [Not Recovered/Not Resolved]
  - Fatigue [Unknown]
  - Diarrhoea [Unknown]
  - Rash macular [Unknown]
  - Oral herpes [Unknown]
  - Drug dose omission [Recovered/Resolved]
  - Back pain [Recovered/Resolved]
  - Angina bullosa haemorrhagica [Unknown]
  - Paraesthesia [Unknown]
  - Musculoskeletal stiffness [Unknown]
  - Incorrect dose administered [Unknown]
  - Urinary hesitation [Unknown]
  - Rosacea [Unknown]
  - Weight increased [Unknown]
  - Muscle spasms [Unknown]
  - Paralysis [Unknown]
  - Burning sensation [Unknown]

NARRATIVE: CASE EVENT DATE: 20151222
